FAERS Safety Report 8341354-3 (Version None)
Quarter: 2012Q2

REPORT INFORMATION
  Report Type: 
  Country: None (occurrence: None)
  Receive Date: 20120507
  Receipt Date: 20120425
  Transmission Date: 20120825
  Serious: No
  Sender: FDA-Public Use
  Company Number: US-CELGENEUS-163-21880-12032895

PATIENT
  Sex: Female

DRUGS (14)
  1. VITAMIN D [Concomitant]
     Route: 065
  2. LOVENOX [Concomitant]
     Indication: ANTICOAGULANT THERAPY
     Route: 065
     Dates: end: 20120229
  3. POTASSIUM CHLORIDE [Concomitant]
     Route: 065
  4. FUROSEMIDE [Concomitant]
     Route: 065
  5. VITAMIN B-12 [Concomitant]
     Route: 065
  6. MULTI-VITAMINS [Concomitant]
     Route: 065
  7. VITAMIN B6 [Concomitant]
     Route: 065
  8. REVLIMID [Suspect]
     Indication: MULTIPLE MYELOMA
     Dosage: 25 MILLIGRAM
     Route: 048
     Dates: start: 20091101
  9. GABAPENTIN [Concomitant]
     Route: 065
  10. DULCOLAX [Concomitant]
     Route: 065
  11. REVLIMID [Suspect]
     Dosage: 10 MILLIGRAM
     Route: 048
     Dates: start: 20110301
  12. WARFARIN SODIUM [Concomitant]
     Route: 065
  13. DEXAMETHASONE [Concomitant]
     Route: 065
  14. COUMADIN [Concomitant]
     Indication: ANTICOAGULANT THERAPY
     Route: 065
     Dates: start: 20120229

REACTIONS (1)
  - VARICOSE VEIN [None]
